FAERS Safety Report 5822604-1 (Version None)
Quarter: 2008Q3

REPORT INFORMATION
  Report Type: 
  Country: None (occurrence: None)
  Receive Date: 20080714
  Receipt Date: 20080306
  Transmission Date: 20090109
  Serious: Yes (Hospitalization)
  Sender: FDA-Public Use
  Company Number: 551478

PATIENT
  Age: 74 Year
  Sex: Female

DRUGS (9)
  1. BONIVA [Suspect]
     Indication: OSTEOPOROSIS
     Dosage: 150 MG 1 PER 1 MONTH ORAL
     Route: 048
  2. DIOVAN [Concomitant]
  3. CRESTOR [Concomitant]
  4. VESICARE [Concomitant]
  5. AMLODIPINE BESILATE (AMLODIPINE BESYLATE) [Concomitant]
  6. CLONIDINE [Concomitant]
  7. APO-METOPROLOL (METOPROLOL) [Concomitant]
  8. FERROUS SULFATE TAB [Concomitant]
  9. VIACTIV (CALCIUM CARBONATE/CHOLECALCIFEROL) [Concomitant]

REACTIONS (2)
  - OESOPHAGEAL PAIN [None]
  - VOMITING [None]
